FAERS Safety Report 9173907 (Version 1)
Quarter: 2013Q1

REPORT INFORMATION
  Report Type: Spontaneous
  Country: US (occurrence: None)
  Receive Date: 20130314
  Receipt Date: 20130314
  Transmission Date: 20140127
  Serious: Yes (Other)
  Sender: FDA-Public Use
  Company Number: JPI-P-030451

PATIENT
  Age: 28 Year
  Sex: Male

DRUGS (1)
  1. XYREM (500 MILLIGRAM/MILLILITERS, SOLUTION) (SODIUM OXYBATE) [Suspect]
     Indication: DYSTONIA
     Dosage: (4 GM,2 IN 1 D)
     Route: 048
     Dates: start: 20041220

REACTIONS (2)
  - Myoclonus [None]
  - Dystonia [None]
